FAERS Safety Report 6131153-5 (Version None)
Quarter: 2009Q1

REPORT INFORMATION
  Report Type: 
  Country: None (occurrence: None)
  Receive Date: 20090325
  Receipt Date: 20090325
  Transmission Date: 20090719
  Serious: Yes (Hospitalization)
  Sender: FDA-Public Use
  Company Number: PHHO2004IT14933

PATIENT
  Sex: Female
  Weight: 54 kg

DRUGS (3)
  1. CGS 20267 T30748+ [Suspect]
     Indication: BREAST CANCER
     Dosage: 2.5 MG, QD
     Route: 048
     Dates: start: 20021022, end: 20031211
  2. CGS 20267 T30748+ [Suspect]
     Dosage: NO TREATMENT
     Dates: start: 20031212, end: 20040226
  3. LEVOFLOXACIN [Concomitant]
     Indication: URINARY TRACT INFECTION
     Dates: start: 20031212, end: 20031222

REACTIONS (6)
  - ANAEMIA [None]
  - CARDIAC FAILURE [None]
  - HYPERTENSION [None]
  - OEDEMA PERIPHERAL [None]
  - OESOPHAGITIS [None]
  - PLEURAL EFFUSION [None]
